FAERS Safety Report 8250101-5 (Version None)
Quarter: 2012Q2

REPORT INFORMATION
  Report Type: 
  Country: None (occurrence: None)
  Receive Date: 20120402
  Receipt Date: 20120329
  Transmission Date: 20120825
  Serious: Yes (Hospitalization, Other)
  Sender: FDA-Public Use
  Company Number: CN-PFIZER INC-2012080913

PATIENT
  Age: 53 Year
  Sex: Female

DRUGS (2)
  1. LIPITOR [Suspect]
     Indication: LIPIDS INCREASED
     Dosage: 10 MG TWICE PER DAY
     Route: 048
  2. LIPITOR [Suspect]
     Indication: HYPERTRIGLYCERIDAEMIA
     Dosage: 20 MG TWICE PER DAY
     Route: 048
     Dates: start: 20120314, end: 20120324

REACTIONS (5)
  - MYALGIA [None]
  - RHABDOMYOLYSIS [None]
  - MULTI-ORGAN FAILURE [None]
  - DRUG INEFFECTIVE [None]
  - DIARRHOEA [None]
